FAERS Safety Report 9964130 (Version 2)
Quarter: 2014Q1

REPORT INFORMATION
  Report Type: Report from Study
  Country: US (occurrence: US)
  Receive Date: 20140305
  Receipt Date: 20140320
  Transmission Date: 20141002
  Serious: Yes (Hospitalization, Other)
  Sender: FDA-Public Use
  Company Number: US-GILEAD-2014-0095924

PATIENT
  Age: 74 Year
  Sex: Female

DRUGS (3)
  1. RANOLAZINE [Suspect]
     Indication: ANGINA PECTORIS
     Dosage: 500 MG, UNK
     Route: 048
  2. RANOLAZINE [Suspect]
     Indication: CORONARY ARTERY DISEASE
     Dosage: 1000 MG, BID
     Route: 048
     Dates: start: 20140227
  3. RANOLAZINE [Suspect]
     Indication: ACUTE CORONARY SYNDROME

REACTIONS (1)
  - Myocardial infarction [Unknown]
